FAERS Safety Report 11848841 (Version 1)
Quarter: 2015Q4

REPORT INFORMATION
  Report Type: Spontaneous
  Country: US (occurrence: None)
  Receive Date: 20151217
  Receipt Date: 20151217
  Transmission Date: 20160305
  Serious: Yes (Hospitalization)
  Sender: FDA-Public Use
  Company Number: None

PATIENT
  Age: 64 Year
  Sex: Male
  Weight: 73.94 kg

DRUGS (9)
  1. TRABECTEDIN [Suspect]
     Active Substance: TRABECTEDIN
     Indication: SARCOMA
     Dosage: 3 MG ?INFUSE AT 24 ML/HR?INTRAVENOUS
     Route: 042
     Dates: start: 20151207, end: 20151208
  2. ENOXAPARIN [Concomitant]
     Active Substance: ENOXAPARIN
  3. GABAPENTIN. [Concomitant]
     Active Substance: GABAPENTIN
  4. DEXAMETHASONE. [Concomitant]
     Active Substance: DEXAMETHASONE
  5. ONDANSETRON [Concomitant]
     Active Substance: ONDANSETRON
  6. HYDROMORPHONE [Concomitant]
     Active Substance: HYDROMORPHONE
  7. SENNOSIDES. [Concomitant]
     Active Substance: SENNOSIDES
  8. FILGASTRIM [Concomitant]
     Active Substance: FILGRASTIM
  9. GLIPIZIDE. [Concomitant]
     Active Substance: GLIPIZIDE

REACTIONS (12)
  - Dizziness [None]
  - Aspartate aminotransferase increased [None]
  - Asthenia [None]
  - Bandaemia [None]
  - Alanine aminotransferase increased [None]
  - Pyrexia [None]
  - Malaise [None]
  - Hypoxia [None]
  - Nausea [None]
  - Vomiting [None]
  - Tachycardia [None]
  - Leukocytosis [None]

NARRATIVE: CASE EVENT DATE: 20151210
